FAERS Safety Report 14853432 (Version 19)
Quarter: 2018Q3

REPORT INFORMATION
  Report Type: Spontaneous
  Country: CA (occurrence: CA)
  Receive Date: 20180507
  Receipt Date: 20180910
  Transmission Date: 20181010
  Serious: Yes (Other)
  Sender: FDA-Public Use
  Company Number: CA-CELLTRION INC.-2017CA000945

PATIENT

DRUGS (18)
  1. INFLECTRA [Suspect]
     Active Substance: INFLIXIMAB-DYYB
     Indication: COLITIS ULCERATIVE
     Dosage: 744 MG (10 MG/KG)  EVERY 2, 6  THEN EVERY 8 WEEKS
     Route: 042
     Dates: start: 20161216, end: 20170417
  2. INFLECTRA [Suspect]
     Active Substance: INFLIXIMAB-DYYB
     Dosage: 500 MG, UNK
     Route: 065
     Dates: start: 20180122
  3. INFLECTRA [Suspect]
     Active Substance: INFLIXIMAB-DYYB
     Dosage: 500 MG, CYCLIC EVERY 8 WEEKS
     Route: 042
     Dates: start: 20180320, end: 20180320
  4. INFLECTRA [Suspect]
     Active Substance: INFLIXIMAB-DYYB
     Dosage: 10 MG/KG CYCLIC EVERY  2, 6  THEN EVERY 8 WEEKS
     Route: 042
     Dates: start: 20170123
  5. INFLECTRA [Suspect]
     Active Substance: INFLIXIMAB-DYYB
     Dosage: 800 MG, CYCLIC(EVERY 6   WEEKS)
     Route: 042
     Dates: start: 20180620, end: 20180620
  6. INFLECTRA [Suspect]
     Active Substance: INFLIXIMAB-DYYB
     Dosage: 800 MG, CYCLIC(EVERY 8 WEEKS)
     Route: 042
     Dates: start: 20180626
  7. INFLECTRA [Suspect]
     Active Substance: INFLIXIMAB-DYYB
     Dosage: 500 MG, CYCLIC EVERY 8 WEEKS
     Route: 042
     Dates: start: 20170612, end: 20180320
  8. INFLECTRA [Suspect]
     Active Substance: INFLIXIMAB-DYYB
     Dosage: 500 MG, UNK
     Route: 065
     Dates: start: 20180122
  9. INFLECTRA [Suspect]
     Active Substance: INFLIXIMAB-DYYB
     Dosage: 500 MG
     Route: 065
     Dates: start: 20180122
  10. INFLECTRA [Suspect]
     Active Substance: INFLIXIMAB-DYYB
     Dosage: 800 MG, CYCLIC(EVERY 8 WEEKS)
     Route: 042
     Dates: start: 20180626
  11. INFLECTRA [Suspect]
     Active Substance: INFLIXIMAB-DYYB
     Dosage: 800 MG, CYCLIC(EVERY 8 WEEKS)
     Route: 042
     Dates: start: 20180815
  12. INFLECTRA [Suspect]
     Active Substance: INFLIXIMAB-DYYB
     Dosage: 500 MG UNK
     Route: 065
     Dates: start: 20180122
  13. INFLECTRA [Suspect]
     Active Substance: INFLIXIMAB-DYYB
     Dosage: 890 MG,(10MG/KG) CYCLIC (EVERY 2, 6 WEEKS, THEN EVERY 8 WEEKS FOR 12 MONTHS)
     Route: 042
  14. INFLECTRA [Suspect]
     Active Substance: INFLIXIMAB-DYYB
     Dosage: 10 MG/KG, CYCLIC EVERY  2, 6  THEN EVERY 8 WEEKS
     Route: 042
     Dates: start: 20170123
  15. INFLECTRA [Suspect]
     Active Substance: INFLIXIMAB-DYYB
     Dosage: 500 MG, CYCLIC (EVERY 6 WEEKS)
     Route: 042
     Dates: start: 20180511, end: 20180511
  16. SALOFALK                           /00000301/ [Concomitant]
     Active Substance: MESALAMINE
     Dosage: 2000?4000MG
     Dates: start: 2018
  17. INFLECTRA [Suspect]
     Active Substance: INFLIXIMAB-DYYB
     Dosage: 10 MG/KG CYCLIC  EVERY  2, 6  THEN EVERY 8 WEEKS
     Route: 042
     Dates: start: 20170123
  18. PREDNISONE. [Concomitant]
     Active Substance: PREDNISONE
     Dosage: 60 MG, QD
     Route: 048
     Dates: start: 201611

REACTIONS (16)
  - Weight decreased [Not Recovered/Not Resolved]
  - Weight increased [Unknown]
  - Faecal calprotectin increased [Unknown]
  - Drug ineffective [Not Recovered/Not Resolved]
  - Back pain [Unknown]
  - Gastrointestinal inflammation [Unknown]
  - Uveitis [Recovered/Resolved]
  - Drug level above therapeutic [Unknown]
  - Lower respiratory tract infection [Unknown]
  - Drug monitoring procedure not performed [Unknown]
  - Product use issue [Unknown]
  - Condition aggravated [Recovering/Resolving]
  - Abdominal pain upper [Recovered/Resolved]
  - Drug level below therapeutic [Unknown]
  - Incorrect drug administration duration [Unknown]
  - Gastroenteritis viral [Recovering/Resolving]

NARRATIVE: CASE EVENT DATE: 20170123
